FAERS Safety Report 20612813 (Version 3)
Quarter: 2022Q2

REPORT INFORMATION
  Report Type: Spontaneous
  Country: US (occurrence: US)
  Receive Date: 20220318
  Receipt Date: 20220405
  Transmission Date: 20220721
  Serious: Yes (Other)
  Sender: FDA-Public Use
  Company Number: US-GILEAD-2022-0573912

PATIENT
  Age: 57 Year
  Sex: Female
  Weight: 120 kg

DRUGS (1)
  1. TRODELVY [Suspect]
     Active Substance: SACITUZUMAB GOVITECAN-HZIY
     Indication: Breast cancer
     Dosage: UNK
     Route: 065
     Dates: start: 20210103, end: 202202

REACTIONS (2)
  - Disease progression [Unknown]
  - Drug ineffective [Unknown]
